FAERS Safety Report 21104876 (Version 1)
Quarter: 2022Q3

REPORT INFORMATION
  Report Type: Spontaneous
  Country: FR (occurrence: FR)
  Receive Date: 20220720
  Receipt Date: 20220720
  Transmission Date: 20221026
  Serious: Yes (Life-Threatening, Other)
  Sender: FDA-Public Use
  Company Number: None

PATIENT
  Age: 38 Year
  Sex: Female
  Weight: 59 kg

DRUGS (9)
  1. ACETAMINOPHEN [Suspect]
     Active Substance: ACETAMINOPHEN
     Indication: Pain management
     Dosage: 1 GRAM, TOTAL
     Route: 048
     Dates: start: 20210208, end: 20210208
  2. MIDAZOLAM [Suspect]
     Active Substance: MIDAZOLAM
     Indication: Anaesthesia
     Dosage: 2 MILLIGRAM, TOTAL
     Route: 042
     Dates: start: 20210208, end: 20210208
  3. DEXAMETHASONE [Suspect]
     Active Substance: DEXAMETHASONE
     Indication: Anaesthesia
     Dosage: 8 MILLIGRAM, TOTAL
     Route: 042
     Dates: start: 20210208, end: 20210208
  4. TRACRIUM [Suspect]
     Active Substance: ATRACURIUM BESYLATE
     Indication: Anaesthesia
     Dosage: 30 MILLIGRAM, TOTAL
     Route: 042
     Dates: start: 20210208, end: 20210208
  5. KETOPROFEN [Suspect]
     Active Substance: KETOPROFEN
     Indication: Antiinflammatory therapy
     Dosage: 100 MILLIGRAM, TOTAL
     Route: 048
     Dates: start: 20210208, end: 20210208
  6. TRAMADOL HYDROCHLORIDE [Suspect]
     Active Substance: TRAMADOL HYDROCHLORIDE
     Indication: Pain management
     Dosage: 100 MILLIGRAM, TOTAL
     Route: 048
     Dates: start: 20210208, end: 20210208
  7. KETAMINE [Suspect]
     Active Substance: KETAMINE
     Indication: Anaesthesia
     Dosage: 20 MILLIGRAM, TOTAL
     Route: 042
     Dates: start: 20210208, end: 20210208
  8. SUFENTA [Suspect]
     Active Substance: SUFENTANIL CITRATE
     Indication: Anaesthesia
     Dosage: 15 MICROGRAM, TOTAL
     Route: 042
     Dates: start: 20210208, end: 20210208
  9. DIPRIVAN [Suspect]
     Active Substance: PROPOFOL
     Indication: Anaesthesia
     Dosage: 150 MILLIGRAM, TOTAL
     Route: 042
     Dates: start: 20210208, end: 20210208

REACTIONS (2)
  - Anaphylactic shock [Recovered/Resolved]
  - Angioedema [Recovered/Resolved]

NARRATIVE: CASE EVENT DATE: 20210208
